FAERS Safety Report 15017933 (Version 1)
Quarter: 2018Q2

REPORT INFORMATION
  Report Type: Spontaneous
  Country: US (occurrence: US)
  Receive Date: 20180523
  Receipt Date: 20180523
  Transmission Date: 20180711
  Serious: Yes (Hospitalization)
  Sender: FDA-Public Use
  Company Number: None

PATIENT
  Age: 56 Year
  Sex: Male

DRUGS (12)
  1. SUPPORT [Concomitant]
  2. NICOTINE TD [Concomitant]
  3. BUPROPION. [Concomitant]
     Active Substance: BUPROPION
  4. TRAMADOL. [Concomitant]
     Active Substance: TRAMADOL
  5. VITAMIN B12 [Concomitant]
     Active Substance: CYANOCOBALAMIN
  6. DIAZEPAM. [Concomitant]
     Active Substance: DIAZEPAM
  7. AMLODIPINE [Concomitant]
     Active Substance: AMLODIPINE BESYLATE
  8. HUMIRA [Suspect]
     Active Substance: ADALIMUMAB
     Indication: CROHN^S DISEASE
     Route: 058
     Dates: start: 20170814
  9. ASPIRIN. [Concomitant]
     Active Substance: ASPIRIN
  10. LIALDA [Concomitant]
     Active Substance: MESALAMINE
  11. NUVIGIL [Concomitant]
     Active Substance: ARMODAFINIL
  12. NEURONTIN [Concomitant]
     Active Substance: GABAPENTIN

REACTIONS (2)
  - Rib fracture [None]
  - Cardiac failure [None]

NARRATIVE: CASE EVENT DATE: 20180508
